FAERS Safety Report 12082619 (Version 3)
Quarter: 2016Q1

REPORT INFORMATION
  Report Type: Spontaneous
  Country: GB (occurrence: GB)
  Receive Date: 20160217
  Receipt Date: 20160308
  Transmission Date: 20160526
  Serious: Yes (Other)
  Sender: FDA-Public Use
  Company Number: GB-DRREDDYS-GER/UKI/12/0025687

PATIENT
  Age: 15 Year
  Sex: Female

DRUGS (4)
  1. CETIRIZINE [Suspect]
     Active Substance: CETIRIZINE HYDROCHLORIDE
     Indication: SEASONAL ALLERGY
     Dosage: OCCASIONAL CETIRIZINE
     Route: 048
  2. LAMICTAL [Interacting]
     Active Substance: LAMOTRIGINE
     Indication: BIPOLAR DISORDER
     Route: 048
  3. ABILIFY [Interacting]
     Active Substance: ARIPIPRAZOLE
     Indication: BIPOLAR DISORDER
  4. NEXPLANON [Interacting]
     Active Substance: ETONOGESTREL
     Indication: CONTRACEPTION
     Route: 059

REACTIONS (6)
  - Unintended pregnancy [Recovered/Resolved]
  - Drug interaction [Unknown]
  - Abortion spontaneous [Unknown]
  - Pregnancy on contraceptive [Recovered/Resolved]
  - Metrorrhagia [Unknown]
  - Exposure during pregnancy [Recovered/Resolved]
